FAERS Safety Report 6755294-4 (Version None)
Quarter: 2010Q2

REPORT INFORMATION
  Report Type: 
  Country: None (occurrence: None)
  Receive Date: 20100602
  Receipt Date: 20100520
  Transmission Date: 20101027
  Serious: Yes (Hospitalization, Disabling, Other)
  Sender: FDA-Public Use
  Company Number: 012557

PATIENT
  Age: 25 Year
  Sex: Male

DRUGS (2)
  1. ROTIGOTINE (ROTIGOTINE) [Suspect]
     Dosage: (4 MG QD TRANSDERMAL)
     Route: 062
  2. FLUOXETINE HCL [Concomitant]

REACTIONS (11)
  - ABNORMAL BEHAVIOUR [None]
  - AGGRESSION [None]
  - APPLICATION SITE RASH [None]
  - DERMATITIS CONTACT [None]
  - DOPAMINE DYSREGULATION SYNDROME [None]
  - DYSKINESIA [None]
  - HYPERSEXUALITY [None]
  - INCORRECT DOSE ADMINISTERED [None]
  - INSOMNIA [None]
  - IRRITABILITY [None]
  - PATHOLOGICAL GAMBLING [None]
